FAERS Safety Report 9789332 (Version 1)
Quarter: 2013Q4

REPORT INFORMATION
  Report Type: Report from Study
  Country: BR (occurrence: BR)
  Receive Date: 20131231
  Receipt Date: 20131231
  Transmission Date: 20140711
  Serious: Yes (Other)
  Sender: FDA-Public Use
  Company Number: BR-ROCHE-1327270

PATIENT
  Age: 39 Year
  Sex: Female
  Weight: 58 kg

DRUGS (8)
  1. XOLAIR [Suspect]
     Indication: ASTHMA
     Route: 065
     Dates: start: 201308
  2. XOLAIR [Suspect]
     Route: 065
     Dates: start: 201309
  3. XOLAIR [Suspect]
     Route: 065
     Dates: start: 201310
  4. XOLAIR [Suspect]
     Route: 065
     Dates: start: 201311, end: 201311
  5. ALINIA [Concomitant]
  6. BUDESONIDE [Concomitant]
  7. PREDNISOLONE [Concomitant]
     Route: 065
  8. PREDNISONE [Concomitant]
     Route: 065

REACTIONS (7)
  - Poisoning [Recovered/Resolved]
  - Hypersensitivity [Recovered/Resolved]
  - Feeling abnormal [Recovered/Resolved]
  - Varicella [Not Recovered/Not Resolved]
  - Pruritus [Not Recovered/Not Resolved]
  - Asthma [Not Recovered/Not Resolved]
  - Feeling hot [Not Recovered/Not Resolved]
